FAERS Safety Report 8487574-9 (Version None)
Quarter: 2012Q3

REPORT INFORMATION
  Report Type: 
  Country: None (occurrence: None)
  Receive Date: 20120705
  Receipt Date: 20120621
  Transmission Date: 20120928
  Serious: No
  Sender: FDA-Public Use
  Company Number: US-JNJFOC-20120612650

PATIENT
  Age: 88 Year
  Sex: Female

DRUGS (6)
  1. FENTANYL-100 [Suspect]
     Indication: PAIN IN EXTREMITY
     Route: 062
     Dates: start: 20120616
  2. XANAX [Concomitant]
     Route: 048
  3. FENTANYL-100 [Suspect]
     Indication: SCIATICA
     Route: 062
     Dates: start: 20120616
  4. LISINOPRIL [Concomitant]
     Indication: HYPERTENSION
     Route: 048
  5. AMBIEN [Concomitant]
     Indication: SLEEP DISORDER
     Route: 048
  6. FUROSEMIDE [Concomitant]
     Indication: SWELLING
     Route: 048

REACTIONS (4)
  - INCORRECT DRUG ADMINISTRATION DURATION [None]
  - RASH [None]
  - BLISTER [None]
  - PAIN [None]
